FAERS Safety Report 21962221 (Version 1)
Quarter: 2023Q1

REPORT INFORMATION
  Report Type: Spontaneous
  Country: IE (occurrence: IE)
  Receive Date: 20230207
  Receipt Date: 20230207
  Transmission Date: 20230418
  Serious: Yes (Life-Threatening, Hospitalization)
  Sender: FDA-Public Use
  Company Number: IE-MYLANLABS-2023M1013364

PATIENT
  Sex: Female

DRUGS (10)
  1. DULOXETINE [Suspect]
     Active Substance: DULOXETINE
     Indication: Fibromyalgia
     Dosage: 60 MILLIGRAM, QD
     Route: 064
  2. FENTANYL [Suspect]
     Active Substance: FENTANYL
     Indication: Foetal movement disorder
     Dosage: 2 MICROGRAM/KILOGRAM
     Route: 065
  3. ATROPINE [Suspect]
     Active Substance: ATROPINE
     Indication: Foetal movement disorder
     Dosage: 0.01 MILLIGRAM/KILOGRAM
     Route: 065
  4. SUCCINYLCHOLINE [Suspect]
     Active Substance: SUCCINYLCHOLINE
     Indication: Foetal movement disorder
     Dosage: 2 MILLIGRAM/KILOGRAM
     Route: 065
  5. LORAZEPAM [Suspect]
     Active Substance: LORAZEPAM
     Indication: Foetal movement disorder
     Dosage: 0.1 MILLIGRAM/KILOGRAM, TWO DOSES
     Route: 065
  6. LORAZEPAM [Suspect]
     Active Substance: LORAZEPAM
     Indication: Drug therapy
  7. PHENOBARBITAL [Suspect]
     Active Substance: PHENOBARBITAL
     Indication: Foetal movement disorder
     Dosage: 40 MILLIGRAM/KILOGRAM, TWO DOSES
     Route: 065
  8. PHENOBARBITAL [Suspect]
     Active Substance: PHENOBARBITAL
     Indication: Drug therapy
  9. LEVETIRACETAM [Suspect]
     Active Substance: LEVETIRACETAM
     Indication: Foetal movement disorder
     Dosage: 60 MILLIGRAM/KILOGRAM, TWO DOSES
     Route: 065
  10. LEVETIRACETAM [Suspect]
     Active Substance: LEVETIRACETAM
     Indication: Drug therapy

REACTIONS (3)
  - Foetal movement disorder [Unknown]
  - Foetal exposure during pregnancy [Recovered/Resolved]
  - Drug ineffective [Unknown]
